FAERS Safety Report 5468257-6 (Version None)
Quarter: 2007Q3

REPORT INFORMATION
  Report Type: 
  Country: None (occurrence: None)
  Receive Date: 20070926
  Receipt Date: 20070917
  Transmission Date: 20080115
  Serious: Yes (Other)
  Sender: FDA-Public Use
  Company Number: US-AVENTIS-200716661US

PATIENT
  Sex: Female
  Weight: 110.9 kg

DRUGS (12)
  1. LANTUS [Suspect]
     Route: 051
     Dates: start: 20070601
  2. LANTUS [Suspect]
     Route: 051
  3. LANTUS [Suspect]
     Route: 051
     Dates: start: 20070907
  4. HUMALOG [Suspect]
     Dosage: FREQUENCY: BEFORE MEALS
     Route: 051
     Dates: end: 20070907
  5. DRUG USED IN DIABETES [Concomitant]
     Dosage: FREQUENCY: BEFORE MEALS
     Route: 051
  6. METFORMIN [Concomitant]
     Dosage: DOSE: UNK
  7. PLAVIX [Concomitant]
     Dosage: DOSE: UNK
  8. NITRO-BID [Concomitant]
     Dosage: DOSE: UNK
  9. ZOCOR [Concomitant]
     Dosage: DOSE: UNK
  10. ATENOLOL [Concomitant]
     Dosage: DOSE: UNK
  11. PROZAC [Concomitant]
     Dosage: DOSE: UNK
  12. XANAX [Concomitant]
     Dosage: DOSE: UNK

REACTIONS (1)
  - WEIGHT INCREASED [None]
